FAERS Safety Report 9016895 (Version 2)
Quarter: 2013Q3

REPORT INFORMATION
  Report Type: Report from Study
  Country: US (occurrence: US)
  Receive Date: 20130117
  Receipt Date: 20130814
  Transmission Date: 20140515
  Serious: Yes (Disabling)
  Sender: FDA-Public Use
  Company Number: PHHY2012US102013

PATIENT
  Age: 38 Year
  Sex: Female
  Weight: 84.35 kg

DRUGS (9)
  1. GILENYA [Suspect]
     Indication: RELAPSING-REMITTING MULTIPLE SCLEROSIS
     Dosage: 0.5 MG, QD
     Route: 048
     Dates: start: 20110402
  2. KLONOPIN [Concomitant]
     Indication: TREMOR
     Dosage: 1 MG/DAILY
     Dates: start: 20091109
  3. AMBIEN CR [Concomitant]
     Indication: INSOMNIA
     Dosage: 12.5 MG, UNK
     Dates: start: 20110111
  4. AMBIEN [Concomitant]
     Dosage: UNK UKN, UNK
     Dates: start: 20120226
  5. STEROIDS NOS [Concomitant]
     Dosage: UNK UKN, UNK
     Dates: end: 20120224
  6. WELLBUTRIN [Concomitant]
     Indication: DEPRESSION
     Dosage: 1 DF, UNK
     Route: 048
     Dates: start: 20110111
  7. NORCO [Concomitant]
     Indication: POST HERPETIC NEURALGIA
     Dosage: 200 TO 350 MG AT 1 AND HALF TABLET DAILY
     Route: 048
     Dates: start: 20120724
  8. FORCET [Concomitant]
     Indication: HEADACHE
     Dosage: ONE TABLET EVERY 4 - 6 HOURS DAILY
     Route: 048
     Dates: start: 20120604
  9. ZANTAC [Concomitant]
     Indication: DYSPEPSIA
     Dosage: 150 MG, QD
     Route: 048
     Dates: start: 20120217

REACTIONS (2)
  - Anxiety [Unknown]
  - Depression [Unknown]
